FAERS Safety Report 14383203 (Version 12)
Quarter: 2024Q3

REPORT INFORMATION
  Report Type: Spontaneous
  Country: GR (occurrence: GR)
  Receive Date: 20180115
  Receipt Date: 20240918
  Transmission Date: 20241017
  Serious: Yes (Other)
  Sender: ROCHE
  Company Number: None

PATIENT
  Age: 62 Year
  Sex: Female

DRUGS (49)
  1. TRASTUZUMAB [Suspect]
     Active Substance: TRASTUZUMAB
     Indication: Breast cancer metastatic
     Dosage: COMBINATION WITH FULVESTRANT
     Route: 065
     Dates: start: 2009
  2. TRASTUZUMAB [Suspect]
     Active Substance: TRASTUZUMAB
     Indication: Recurrent cancer
     Dosage: COMBINATION WITH LIPOSOMAL DOXORUBICIN HCL
     Route: 065
     Dates: start: 2009
  3. TRASTUZUMAB [Suspect]
     Active Substance: TRASTUZUMAB
     Dosage: COMBINATION WITH ERIBULIN
     Route: 065
     Dates: start: 2009
  4. TRASTUZUMAB [Suspect]
     Active Substance: TRASTUZUMAB
     Dosage: COMBINATION WITH EXEMESTANE AND EVEROLIMUS
     Route: 065
     Dates: start: 20090101
  5. TRASTUZUMAB [Suspect]
     Active Substance: TRASTUZUMAB
     Dosage: COMBINATION WITH TAMOXIFEN
     Route: 065
     Dates: start: 20090101
  6. TRASTUZUMAB [Suspect]
     Active Substance: TRASTUZUMAB
     Dosage: COMBINATION WITH CAPECITABINE
     Route: 065
     Dates: start: 20090101
  7. TRASTUZUMAB [Suspect]
     Active Substance: TRASTUZUMAB
     Dosage: COMBINATION WITH GEMCITABINE AND CARBOPLATIN
     Route: 065
     Dates: start: 20090101
  8. TRASTUZUMAB [Suspect]
     Active Substance: TRASTUZUMAB
     Dosage: REGIMEN 1
     Route: 065
     Dates: start: 2009
  9. TRASTUZUMAB [Suspect]
     Active Substance: TRASTUZUMAB
     Dosage: COMBINATION WITH VINORELBINE
     Route: 065
     Dates: start: 2009
  10. TRASTUZUMAB [Suspect]
     Active Substance: TRASTUZUMAB
     Dosage: 1 DF, QD COMBINATION WITH VINORELBINE
     Route: 065
     Dates: start: 2009
  11. CAPECITABINE [Suspect]
     Active Substance: CAPECITABINE
     Indication: Breast cancer metastatic
     Dosage: COMBINATION WITH LAPATINIB
     Route: 065
     Dates: start: 2009
  12. CAPECITABINE [Suspect]
     Active Substance: CAPECITABINE
     Indication: Recurrent cancer
     Dosage: COMBINATION WITH LAPATINIB
     Route: 065
     Dates: start: 2009
  13. CAPECITABINE [Suspect]
     Active Substance: CAPECITABINE
     Dosage: 1 DF, CYCLIC COMBINATION WITH TRASTUZUMAB
     Route: 065
     Dates: start: 2009
  14. ADO-TRASTUZUMAB EMTANSINE [Suspect]
     Active Substance: ADO-TRASTUZUMAB EMTANSINE
     Indication: Breast cancer metastatic
     Route: 065
     Dates: start: 2009
  15. ADO-TRASTUZUMAB EMTANSINE [Suspect]
     Active Substance: ADO-TRASTUZUMAB EMTANSINE
     Indication: Recurrent cancer
     Route: 065
  16. EVEROLIMUS [Suspect]
     Active Substance: EVEROLIMUS
     Indication: Breast cancer metastatic
     Dosage: 1 - EVERY CYCLE, REGIMEN#1, COMBINATION WITH TRASTZUMAB AND EXEMESTANE
     Route: 065
     Dates: start: 2009
  17. EVEROLIMUS [Suspect]
     Active Substance: EVEROLIMUS
     Indication: Prophylaxis against transplant rejection
     Route: 065
  18. EVEROLIMUS [Suspect]
     Active Substance: EVEROLIMUS
     Indication: Breast cancer
     Route: 065
  19. EVEROLIMUS [Suspect]
     Active Substance: EVEROLIMUS
     Indication: Recurrent cancer
  20. DOXORUBICIN HYDROCHLORIDE [Suspect]
     Active Substance: DOXORUBICIN HYDROCHLORIDE
     Indication: Breast cancer metastatic
     Dosage: 1 - EVERY CYCLE, REGIMEN#1, COMBINATION WITH TRASTUZUMAB
     Route: 065
     Dates: start: 2009
  21. DOXORUBICIN HYDROCHLORIDE [Suspect]
     Active Substance: DOXORUBICIN HYDROCHLORIDE
     Indication: Recurrent cancer
     Route: 065
  22. CYCLOPHOSPHAMIDE [Suspect]
     Active Substance: CYCLOPHOSPHAMIDE
     Indication: Breast cancer metastatic
     Route: 065
     Dates: start: 2006
  23. METHOTREXATE SODIUM [Suspect]
     Active Substance: METHOTREXATE SODIUM
     Indication: Breast cancer metastatic
     Dosage: REGIMEN #1
     Route: 065
     Dates: start: 2006
  24. METHOTREXATE SODIUM [Suspect]
     Active Substance: METHOTREXATE SODIUM
     Route: 065
  25. GEMCITABINE HYDROCHLORIDE [Suspect]
     Active Substance: GEMCITABINE HYDROCHLORIDE
     Indication: Breast cancer metastatic
     Dosage: 1 - EVERY CYCLE, COMBINATION WITH TRASTUZUMAB AND CARBOPLATIN
     Route: 065
     Dates: start: 2009
  26. GEMCITABINE HYDROCHLORIDE [Suspect]
     Active Substance: GEMCITABINE HYDROCHLORIDE
     Indication: Recurrent cancer
     Route: 065
  27. TAMOXIFEN CITRATE [Suspect]
     Active Substance: TAMOXIFEN CITRATE
     Indication: Breast cancer metastatic
     Dosage: 1-EVERY CYCLE, REGIMEN#1, COMBINATION WITH TRASTUZUMAB
     Route: 048
     Dates: start: 2009
  28. TAMOXIFEN CITRATE [Suspect]
     Active Substance: TAMOXIFEN CITRATE
     Indication: Recurrent cancer
     Route: 065
  29. TAMOXIFEN CITRATE [Suspect]
     Active Substance: TAMOXIFEN CITRATE
     Dosage: COMBINATION WITH TRASTUZUMAB
     Route: 048
  30. LAPATINIB [Suspect]
     Active Substance: LAPATINIB
     Indication: Breast cancer metastatic
     Dosage: COMBINATION WITH CAPECITABINE
     Route: 065
     Dates: start: 2009
  31. LAPATINIB [Suspect]
     Active Substance: LAPATINIB
     Indication: Recurrent cancer
     Route: 065
  32. LAPATINIB [Suspect]
     Active Substance: LAPATINIB
     Indication: Metastatic malignant melanoma
  33. EPIRUBICIN HYDROCHLORIDE [Suspect]
     Active Substance: EPIRUBICIN HYDROCHLORIDE
     Indication: Breast cancer metastatic
     Dosage: 1 - EVERY CYCLE, REGIMEN#1
     Route: 065
     Dates: start: 2006
  34. FULVESTRANT [Suspect]
     Active Substance: FULVESTRANT
     Indication: Breast cancer metastatic
     Dosage: COMBINATION WITH TRASTUZUMAB
     Route: 030
     Dates: start: 2009
  35. FULVESTRANT [Suspect]
     Active Substance: FULVESTRANT
     Indication: Recurrent cancer
     Route: 065
  36. FULVESTRANT [Suspect]
     Active Substance: FULVESTRANT
     Indication: Metastatic malignant melanoma
  37. ERIBULIN [Suspect]
     Active Substance: ERIBULIN
     Indication: Breast cancer metastatic
     Dosage: COMBINATION WITH TRASTUZUMAB
     Route: 041
     Dates: start: 2009
  38. ERIBULIN [Suspect]
     Active Substance: ERIBULIN
     Indication: Recurrent cancer
     Dosage: COMBINATION WITH TRASTUZUMAB
     Route: 065
  39. VINORELBINE [Suspect]
     Active Substance: VINORELBINE TARTRATE
     Indication: Breast cancer metastatic
     Dosage: COMBINATION WITH TRASTUZUMAB
     Route: 065
     Dates: start: 20090101
  40. VINORELBINE [Suspect]
     Active Substance: VINORELBINE TARTRATE
     Indication: Recurrent cancer
     Route: 065
  41. CARBOPLATIN [Suspect]
     Active Substance: CARBOPLATIN
     Indication: Breast cancer metastatic
     Dosage: COMBINATION WITH TRASTUZUMAB AND GEMCITABINE
     Route: 065
     Dates: start: 2009
  42. CARBOPLATIN [Suspect]
     Active Substance: CARBOPLATIN
     Indication: Recurrent cancer
     Route: 065
  43. FLUOROURACIL [Suspect]
     Active Substance: FLUOROURACIL
     Indication: Breast cancer metastatic
     Route: 065
     Dates: start: 2006
  44. EXEMESTANE [Suspect]
     Active Substance: EXEMESTANE
     Indication: Breast cancer metastatic
     Dosage: COMBINATION WITH TRASTUZUMAB AND EVEROLIMUS
     Route: 065
     Dates: start: 2009
  45. EXEMESTANE [Suspect]
     Active Substance: EXEMESTANE
     Indication: Recurrent cancer
     Route: 065
  46. PACLITAXEL [Suspect]
     Active Substance: PACLITAXEL
     Indication: Breast cancer metastatic
     Route: 065
     Dates: start: 2006
  47. DOCETAXEL [Suspect]
     Active Substance: DOCETAXEL\DOCETAXEL ANHYDROUS
     Indication: Breast cancer metastatic
     Dosage: REGIMEN NO 1
     Route: 065
     Dates: start: 2009
  48. DOCETAXEL [Suspect]
     Active Substance: DOCETAXEL\DOCETAXEL ANHYDROUS
     Indication: Recurrent cancer
     Route: 065
  49. CYCLOPHOSPHAMIDE [Suspect]
     Active Substance: CYCLOPHOSPHAMIDE
     Indication: Breast cancer metastatic
     Dosage: UNK
     Route: 065

REACTIONS (9)
  - Skin mass [Unknown]
  - Metastases to bone [Unknown]
  - Recurrent cancer [Unknown]
  - Metastases to lymph nodes [Unknown]
  - Metastases to lung [Unknown]
  - Hormone receptor positive breast cancer [Unknown]
  - Metastases to skin [Unknown]
  - Breast cancer metastatic [Unknown]
  - Neoplasm progression [Unknown]

NARRATIVE: CASE EVENT DATE: 20090101
